FAERS Safety Report 9353703 (Version 1)
Quarter: 2013Q2

REPORT INFORMATION
  Report Type: Spontaneous
  Country: DE (occurrence: None)
  Receive Date: 20130612
  Receipt Date: 20130612
  Transmission Date: 20140414
  Serious: Yes (Death)
  Sender: FDA-Public Use
  Company Number: AUR-APL-2013-04787

PATIENT
  Age: 77 Year
  Sex: Female
  Weight: 74 kg

DRUGS (5)
  1. LEVOFLOXACIN (LEVOFLOXACIN) [Suspect]
     Indication: LEUKOCYTOSIS
     Dosage: 1 IN 1 D
     Route: 048
     Dates: start: 20130412
  2. CARBIMAZOLE [Concomitant]
  3. ISOPTIN [Concomitant]
  4. TOREM [Concomitant]
  5. OMEP [Concomitant]

REACTIONS (1)
  - Death [None]
